FAERS Safety Report 11769521 (Version 1)
Quarter: 2015Q4

REPORT INFORMATION
  Report Type: Spontaneous
  Country: HR (occurrence: HR)
  Receive Date: 20151123
  Receipt Date: 20151123
  Transmission Date: 20160304
  Serious: Yes (Hospitalization)
  Sender: FDA-Public Use
  Company Number: HR-TEVA-609445ISR

PATIENT
  Age: 40 Year
  Sex: Male
  Weight: 84 kg

DRUGS (4)
  1. OXALIPLATIN PLIVA [Suspect]
     Active Substance: OXALIPLATIN
     Indication: PANCREATIC CARCINOMA
     Dosage: 170 MILLIGRAM DAILY;
     Route: 041
     Dates: start: 20150819, end: 20150819
  2. FLUOROURACIL PLIVA [Suspect]
     Active Substance: FLUOROURACIL
     Dosage: 4400 MILLIGRAM DAILY;
     Route: 041
     Dates: start: 20150819, end: 20150819
  3. SIOFOR 850 [Concomitant]
     Indication: TYPE 2 DIABETES MELLITUS
     Dosage: 1700 MILLIGRAM DAILY;
     Route: 048
     Dates: start: 20150301
  4. CALCIUM FOLINATE [Suspect]
     Active Substance: LEUCOVORIN CALCIUM
     Dosage: 800 MILLIGRAM DAILY;
     Route: 041
     Dates: start: 20150819, end: 20150819

REACTIONS (3)
  - Urticaria [Recovered/Resolved]
  - Rash erythematous [Recovered/Resolved]
  - Burning sensation [Recovered/Resolved]

NARRATIVE: CASE EVENT DATE: 20150819
